FAERS Safety Report 12284571 (Version 1)
Quarter: 2016Q2

REPORT INFORMATION
  Report Type: Spontaneous
  Country: GB (occurrence: GB)
  Receive Date: 20160420
  Receipt Date: 20160420
  Transmission Date: 20160815
  Serious: Yes (Other)
  Sender: FDA-Public Use
  Company Number: GB-009507513-1604GBR012793

PATIENT
  Age: 35 Year
  Sex: Male
  Weight: 80 kg

DRUGS (5)
  1. NITROGLYCERIN. [Suspect]
     Active Substance: NITROGLYCERIN
     Dates: start: 20160218
  2. CLENIL MODULITE [Concomitant]
     Active Substance: BECLOMETHASONE DIPROPIONATE
     Dosage: 2 DF, BID
     Route: 055
     Dates: start: 20150630
  3. NORTRIPTYLINE [Concomitant]
     Active Substance: NORTRIPTYLINE
     Dosage: AT NIGHT
     Dates: start: 20140813, end: 20160218
  4. ALBUTEROL. [Concomitant]
     Active Substance: ALBUTEROL
     Dosage: 1-2 PUFFS AS REQUIRED, SLOW STEADY INHALATION
     Route: 055
     Dates: start: 20150619
  5. LEVOTHYROXINE SODIUM. [Concomitant]
     Active Substance: LEVOTHYROXINE SODIUM
     Dosage: 1 DF, QD
     Dates: start: 20141111

REACTIONS (1)
  - Cervicogenic headache [Recovered/Resolved]

NARRATIVE: CASE EVENT DATE: 20160411
